FAERS Safety Report 5658802-X (Version None)
Quarter: 2008Q1

REPORT INFORMATION
  Report Type: 
  Country: None (occurrence: None)
  Receive Date: 20080310
  Receipt Date: 20070413
  Transmission Date: 20080703
  Serious: No
  Sender: FDA-Public Use
  Company Number: US-BAYER-200711130BCC

PATIENT
  Sex: Female
  Weight: 52 kg

DRUGS (8)
  1. ALEVE [Suspect]
     Indication: PAIN IN EXTREMITY
     Dosage: UNIT DOSE: 220 MG
     Route: 048
     Dates: start: 20061101
  2. ALEVE [Suspect]
     Dosage: UNIT DOSE: 220 MG
     Route: 048
     Dates: start: 20070301
  3. FOSAMAX [Concomitant]
  4. TYLENOL (CAPLET) [Concomitant]
  5. SUPER B COMPLEX [Concomitant]
  6. CENTRUM VITAMINS [Concomitant]
  7. CALCIUM 600 PLUS D VITAMIN [Concomitant]
  8. FISH OIL CAPSULES [Concomitant]

REACTIONS (1)
  - RASH [None]
